FAERS Safety Report 9334728 (Version 1)
Quarter: 2013Q2

REPORT INFORMATION
  Report Type: Spontaneous
  Country: US (occurrence: US)
  Receive Date: 20130606
  Receipt Date: 20130606
  Transmission Date: 20140414
  Serious: No
  Sender: FDA-Public Use
  Company Number: US-AMGEN-USASP2013019597

PATIENT
  Age: 68 Year
  Sex: Female
  Weight: 46.71 kg

DRUGS (3)
  1. PROLIA [Suspect]
     Indication: OSTEOPOROSIS POSTMENOPAUSAL
     Dosage: 60 MG, Q6MO
     Route: 058
     Dates: start: 20130130
  2. LEVOTHYROXINE [Concomitant]
     Dosage: UNK
  3. CRESTOR [Concomitant]
     Dosage: 20 UNK, UNK

REACTIONS (2)
  - Rash maculo-papular [Recovered/Resolved]
  - Eczema [Recovering/Resolving]
